FAERS Safety Report 21822100 (Version 1)
Quarter: 2023Q1

REPORT INFORMATION
  Report Type: Other
  Country: CA (occurrence: CA)
  Receive Date: 20230105
  Receipt Date: 20230105
  Transmission Date: 20230417
  Serious: Yes (Death, Hospitalization)
  Sender: FDA-Public Use
  Company Number: CA-PFIZER INC-202300004652

PATIENT
  Age: 50 Year
  Sex: Female

DRUGS (1)
  1. METHOTREXATE SODIUM [Suspect]
     Active Substance: METHOTREXATE SODIUM
     Indication: Metastases to meninges
     Route: 037

REACTIONS (10)
  - Blindness [Fatal]
  - Drug ineffective [Fatal]
  - Fatigue [Fatal]
  - Headache [Fatal]
  - Metastases to meninges [Fatal]
  - Muscular weakness [Fatal]
  - Nausea [Fatal]
  - Odynophagia [Fatal]
  - Off label use [Fatal]
  - Oropharyngeal pain [Fatal]
